FAERS Safety Report 9674633 (Version 1)
Quarter: 2013Q4

REPORT INFORMATION
  Report Type: Spontaneous
  Country: US (occurrence: None)
  Receive Date: 20131106
  Receipt Date: 20131106
  Transmission Date: 20140711
  Serious: Yes (Other)
  Sender: FDA-Public Use
  Company Number: None

PATIENT
  Age: 32 Year
  Sex: Female
  Weight: 58.97 kg

DRUGS (1)
  1. TRAZODONE [Suspect]
     Indication: INSOMNIA
     Dosage: 1 ONCE DAILY TAKEN BY MOUTH
     Dates: start: 20100803, end: 20131105

REACTIONS (3)
  - Disorientation [None]
  - Confusional state [None]
  - Loss of consciousness [None]
